FAERS Safety Report 4393117-1 (Version None)
Quarter: 2004Q3

REPORT INFORMATION
  Report Type: 
  Country: None (occurrence: None)
  Receive Date: 20040706
  Receipt Date: 20040628
  Transmission Date: 20050211
  Serious: Yes (Hospitalization)
  Sender: FDA-Public Use
  Company Number: 200416497GDDC

PATIENT
  Age: 77 Year
  Sex: Male

DRUGS (6)
  1. ENOXAPARIN SODIUM [Suspect]
     Indication: DEEP VEIN THROMBOSIS
     Route: 058
     Dates: start: 20040520, end: 20040527
  2. ARCOXIA [Suspect]
     Indication: OSTEOARTHRITIS
     Route: 048
     Dates: start: 20030427, end: 20040527
  3. COVERSYL PLUS [Concomitant]
     Indication: HYPERTENSION
     Dosage: DOSE: 1 TAB
     Route: 048
  4. CO-DYDRAMOL [Concomitant]
     Indication: OSTEOARTHRITIS
     Dosage: DOSE: 1-2 TABS
     Route: 048
  5. BISOPROLOL [Concomitant]
     Indication: CARDIAC FAILURE CONGESTIVE
     Route: 048
     Dates: start: 20030904
  6. BISOPROLOL [Concomitant]
     Indication: HYPERTENSION
     Route: 048
     Dates: start: 20030904

REACTIONS (6)
  - DUODENAL ULCER [None]
  - GASTROOESOPHAGEAL REFLUX DISEASE [None]
  - HIATUS HERNIA [None]
  - KNEE ARTHROPLASTY [None]
  - MELAENA [None]
  - REFLUX OESOPHAGITIS [None]
